FAERS Safety Report 5099976-1 (Version None)
Quarter: 2006Q3

REPORT INFORMATION
  Report Type: 
  Country: None (occurrence: None)
  Receive Date: 20060906
  Receipt Date: 20060906
  Transmission Date: 20061208
  Serious: Yes (Other)
  Sender: FDA-Public Use
  Company Number: None

PATIENT
  Sex: Female

DRUGS (1)
  1. GLUTOFAC [Suspect]
     Dosage: 1 QD
     Dates: start: 20050801

REACTIONS (2)
  - DRUG INTOLERANCE [None]
  - STOMACH DISCOMFORT [None]
